FAERS Safety Report 23557497 (Version 1)
Quarter: 2024Q1

REPORT INFORMATION
  Report Type: Spontaneous
  Country: US (occurrence: US)
  Receive Date: 20240223
  Receipt Date: 20240223
  Transmission Date: 20240410
  Serious: Yes (Other)
  Sender: FDA-Public Use
  Company Number: US-Coherus Biosciences, Inc.-2024-COH-US000095

PATIENT

DRUGS (2)
  1. PEGFILGRASTIM [Suspect]
     Active Substance: PEGFILGRASTIM
     Indication: Prophylaxis
     Dosage: UNK
  2. BLEOMYCIN [Suspect]
     Active Substance: BLEOMYCIN SULFATE
     Indication: Testis cancer
     Dosage: CUMULATIVE DOSE: 90 UNITS

REACTIONS (1)
  - Pulmonary toxicity [Unknown]
